FAERS Safety Report 9394899 (Version 5)
Quarter: 2013Q3

REPORT INFORMATION
  Report Type: Report from Study
  Country: BE (occurrence: BE)
  Receive Date: 20130711
  Receipt Date: 20130924
  Transmission Date: 20140515
  Serious: Yes (Other)
  Sender: FDA-Public Use
  Company Number: BE-PFIZER INC-2013198921

PATIENT
  Age: 38 Year
  Sex: Female
  Weight: 56 kg

DRUGS (14)
  1. XALKORI [Suspect]
     Indication: NON-SMALL CELL LUNG CANCER
     Dosage: 250 MG, 2X/DAY
     Route: 048
     Dates: start: 20130528, end: 20130619
  2. XALKORI [Suspect]
     Dosage: UNK
     Dates: start: 20130623
  3. XGEVA [Concomitant]
     Indication: METASTASES TO BONE
     Dosage: 120 MG, MONTHLY
     Route: 058
     Dates: start: 201306
  4. IBUPROFEN [Concomitant]
     Indication: METASTATIC PAIN
     Dosage: UNK, 1X/DAY
     Route: 048
  5. FOLAVIT [Concomitant]
     Indication: PROPHYLAXIS
     Dosage: UNK
  6. PANTOMED [Concomitant]
     Indication: NAUSEA
     Dosage: 20 MG, 2X/DAY
     Route: 048
  7. MEDROL [Concomitant]
     Indication: METASTASES TO CENTRAL NERVOUS SYSTEM
     Dosage: 4 MG, UNK
  8. XANAX [Concomitant]
     Dosage: UNK
  9. LITICAN [Concomitant]
     Indication: NAUSEA
     Dosage: UNK
  10. MOTILIUM ^JANSSEN^ [Concomitant]
     Indication: NAUSEA
     Dosage: UNK
  11. PARACODINE [Concomitant]
     Dosage: UNK
  12. DUOVENT [Concomitant]
     Dosage: UNK
  13. RIOPAN [Concomitant]
     Indication: NAUSEA
     Dosage: UNK
  14. CALC CARB/CALC CITR/CHONDROITIN S04 SOD/GLUCOSAMINE HCL/VIT D3 [Concomitant]
     Dosage: UNK

REACTIONS (2)
  - Periorbital oedema [Recovered/Resolved]
  - Periorbital oedema [Unknown]
